FAERS Safety Report 23046258 (Version 3)
Quarter: 2024Q3

REPORT INFORMATION
  Report Type: Spontaneous
  Country: ES (occurrence: ES)
  Receive Date: 20231009
  Receipt Date: 20240718
  Transmission Date: 20241016
  Serious: Yes (Life-Threatening, Hospitalization)
  Sender: SANDOZ
  Company Number: ES-002147023-NVSC2022ES182566

PATIENT
  Age: 55 Year
  Sex: Male
  Weight: 74.8 kg

DRUGS (18)
  1. TAXOTERE [Suspect]
     Active Substance: DOCETAXEL
     Indication: Prostate cancer
     Dosage: UNK
     Route: 065
     Dates: start: 20220302, end: 20220524
  2. ABIRATERONE [Concomitant]
     Active Substance: ABIRATERONE
     Indication: Hormone-refractory prostate cancer
     Dosage: UNK
     Route: 065
     Dates: start: 20210208, end: 20210907
  3. ALPROSTADIL [Concomitant]
     Active Substance: ALPROSTADIL
     Indication: Erectile dysfunction
     Dosage: UNK
     Route: 065
     Dates: start: 2015
  4. AMLODIPINE [Concomitant]
     Active Substance: AMLODIPINE BESYLATE
     Indication: Hypertension
     Dosage: UNK
     Route: 065
     Dates: start: 2020
  5. AMOXICILLIN [Concomitant]
     Active Substance: AMOXICILLIN
     Indication: Tooth abscess
     Dosage: UNK
     Route: 065
     Dates: start: 20210920
  6. DEXKETOPROFEN [Concomitant]
     Active Substance: DEXKETOPROFEN
     Indication: Back pain
     Dosage: UNK
     Route: 065
     Dates: start: 20211222
  7. DEXKETOPROFEN [Concomitant]
     Active Substance: DEXKETOPROFEN
     Indication: Pelvic pain
  8. DIAZEPAM [Concomitant]
     Active Substance: DIAZEPAM
     Indication: Anxiety
     Dosage: UNK
     Route: 065
  9. FENTANYL [Concomitant]
     Active Substance: FENTANYL\FENTANYL CITRATE
     Indication: Back pain
     Dosage: UNK
     Route: 065
     Dates: start: 20211215
  10. FENTANYL [Concomitant]
     Active Substance: FENTANYL\FENTANYL CITRATE
     Indication: Pelvic pain
     Dosage: UNK
     Route: 065
     Dates: start: 20220127
  11. FENTANYL [Concomitant]
     Active Substance: FENTANYL\FENTANYL CITRATE
     Indication: Back pain
  12. LOSARTAN [Concomitant]
     Active Substance: LOSARTAN
     Indication: Hypertension
     Dosage: UNK
     Route: 065
     Dates: start: 2020
  13. METAMIZOL [Concomitant]
     Active Substance: METAMIZOLE SODIUM
     Indication: Back pain
     Dosage: UNK
     Route: 065
     Dates: start: 2020
  14. POLYETHYLENE GLYCOL 3350\POTASSIUM CHLORIDE\SODIUM BICARBONATE\SODIUM [Concomitant]
     Active Substance: POLYETHYLENE GLYCOL 3350\POTASSIUM CHLORIDE\SODIUM BICARBONATE\SODIUM CHLORIDE
     Indication: Constipation
     Dosage: UNK
     Route: 065
     Dates: start: 20211215
  15. OMEPRAZOLE [Concomitant]
     Active Substance: OMEPRAZOLE
     Indication: Prophylaxis
     Dosage: UNK
     Route: 065
     Dates: start: 2020
  16. ONDANSETRON [Concomitant]
     Active Substance: ONDANSETRON
     Indication: Premedication
     Dosage: UNK
     Route: 065
     Dates: start: 20220218, end: 20220218
  17. PREDNISONE [Concomitant]
     Active Substance: PREDNISONE
     Indication: Hormone-refractory prostate cancer
     Dosage: UNK
     Route: 065
     Dates: start: 20210208
  18. TRIPTORELIN [Concomitant]
     Active Substance: TRIPTORELIN
     Indication: Hormone-refractory prostate cancer
     Dosage: UNK
     Route: 065
     Dates: start: 201907

REACTIONS (1)
  - Febrile neutropenia [Recovered/Resolved]

NARRATIVE: CASE EVENT DATE: 20220309
